FAERS Safety Report 5867423-5 (Version None)
Quarter: 2008Q3

REPORT INFORMATION
  Report Type: 
  Country: None (occurrence: None)
  Receive Date: 20080902
  Receipt Date: 20080902
  Transmission Date: 20090109
  Serious: Yes (Hospitalization)
  Sender: FDA-Public Use
  Company Number: PHEH1996US00088

PATIENT
  Sex: Female
  Weight: 65 kg

DRUGS (1)
  1. NEORAL [Suspect]

REACTIONS (2)
  - BRONCHITIS [None]
  - PNEUMONIA [None]
